FAERS Safety Report 6559895-8 (Version None)
Quarter: 2010Q1

REPORT INFORMATION
  Report Type: 
  Country: None (occurrence: None)
  Receive Date: 20100129
  Receipt Date: 20090929
  Transmission Date: 20100710
  Serious: No
  Sender: FDA-Public Use
  Company Number: US-ABBOTT-09P-163-0597265-00

PATIENT
  Sex: Female
  Weight: 72.64 kg

DRUGS (6)
  1. HUMIRA [Suspect]
     Indication: PSORIASIS
     Dates: start: 20090914
  2. LORAZEPAM [Concomitant]
     Indication: ANXIETY
  3. METOPROLOL [Concomitant]
     Indication: ATRIAL FIBRILLATION
     Route: 048
     Dates: start: 20090901
  4. METOPROLOL [Concomitant]
     Dosage: INCREASED DUE TO ATRIAL FIBRILLATION TILL RESOLVED
     Route: 048
     Dates: start: 20090901, end: 20090901
  5. METOPROLOL [Concomitant]
     Route: 048
     Dates: start: 20090901
  6. CRESTOR [Concomitant]
     Indication: BLOOD CHOLESTEROL INCREASED
     Route: 048

REACTIONS (11)
  - ABDOMINAL PAIN UPPER [None]
  - ANXIETY [None]
  - ARRHYTHMIA [None]
  - ATRIAL FIBRILLATION [None]
  - CARDIOMEGALY [None]
  - FATIGUE [None]
  - FEELING ABNORMAL [None]
  - FLUSHING [None]
  - HEART RATE INCREASED [None]
  - POOR QUALITY SLEEP [None]
  - PSORIASIS [None]
